FAERS Safety Report 24143247 (Version 1)
Quarter: 2024Q3

REPORT INFORMATION
  Report Type: Spontaneous
  Country: SE (occurrence: SE)
  Receive Date: 20240726
  Receipt Date: 20240726
  Transmission Date: 20241017
  Serious: Yes (Hospitalization, Disabling)
  Sender: PURDUE
  Company Number: None

PATIENT
  Age: 25 Year
  Sex: Male
  Weight: 77 kg

DRUGS (11)
  1. OXYCODONE HYDROCHLORIDE [Suspect]
     Active Substance: OXYCODONE HYDROCHLORIDE
     Indication: Procedural pain
     Dosage: 2 TABLETS, STRENGTH 5 MG
     Route: 048
     Dates: start: 20220328, end: 20220328
  2. OXYCODONE HYDROCHLORIDE [Suspect]
     Active Substance: OXYCODONE HYDROCHLORIDE
     Indication: Procedural pain
     Dosage: 4+3+3 MG IN SHORT SUCCESSION
     Route: 042
     Dates: start: 20220328, end: 20220328
  3. SEVOFLURANE [Suspect]
     Active Substance: SEVOFLURANE
     Indication: Appendicectomy
     Dosage: UNK
     Route: 065
     Dates: start: 20220328, end: 20220328
  4. FLAGYL [Suspect]
     Active Substance: METRONIDAZOLE\METRONIDAZOLE HYDROCHLORIDE
     Indication: Appendicectomy
     Dosage: UNK
     Route: 065
     Dates: start: 202203
  5. FENTANYL [Suspect]
     Active Substance: FENTANYL\FENTANYL CITRATE
     Indication: Appendicectomy
     Dosage: UNK
     Route: 065
     Dates: start: 20220328, end: 20220328
  6. SULFAMETHOXAZOLE\TRIMETHOPRIM [Concomitant]
     Active Substance: SULFAMETHOXAZOLE\TRIMETHOPRIM
     Indication: Product used for unknown indication
     Dosage: UNK
     Route: 065
     Dates: start: 202203
  7. CELOCURIN [Concomitant]
     Active Substance: SUCCINYLCHOLINE CHLORIDE
     Indication: Product used for unknown indication
     Dosage: UNK
     Route: 065
     Dates: start: 20220328, end: 20220328
  8. PERFALGAN [Concomitant]
     Active Substance: ACETAMINOPHEN
     Indication: Product used for unknown indication
     Dosage: UNK
     Route: 065
     Dates: start: 202203
  9. PENTOTHAL [Concomitant]
     Active Substance: THIOPENTAL SODIUM
     Indication: Product used for unknown indication
     Dosage: UNK
     Route: 065
     Dates: start: 20220328, end: 20220328
  10. ONDANSETRON [Concomitant]
     Active Substance: ONDANSETRON
     Indication: Product used for unknown indication
     Dosage: UNK
     Route: 065
     Dates: start: 202203
  11. ROCURONIUM [Concomitant]
     Active Substance: ROCURONIUM BROMIDE
     Indication: Product used for unknown indication
     Dosage: UNK
     Route: 065
     Dates: start: 20220328, end: 20220328

REACTIONS (14)
  - Dissociative disorder [Unknown]
  - Muscle spasms [Not Recovered/Not Resolved]
  - Hyperaesthesia [Recovered/Resolved]
  - Dyspnoea [Recovered/Resolved]
  - Sick leave [Unknown]
  - Dyskinesia [Recovering/Resolving]
  - Pharyngeal swelling [Unknown]
  - Bronchospasm [Unknown]
  - Urinary retention [Recovered/Resolved]
  - Conversion disorder [Unknown]
  - Rash [Recovered/Resolved]
  - Dry mouth [Recovered/Resolved]
  - Dysphemia [Recovered/Resolved]
  - Muscle contractions involuntary [Not Recovered/Not Resolved]

NARRATIVE: CASE EVENT DATE: 20220301
